FAERS Safety Report 24458940 (Version 1)
Quarter: 2024Q4

REPORT INFORMATION
  Report Type: Spontaneous
  Country: US (occurrence: None)
  Receive Date: 20241017
  Receipt Date: 20241017
  Transmission Date: 20250115
  Serious: No
  Sender: Public
  Company Number: None

PATIENT
  Age: 86 Year
  Sex: Male
  Weight: 91 kg

DRUGS (1)
  1. QUETIAPINE FUMARATE [Suspect]
     Active Substance: QUETIAPINE FUMARATE

REACTIONS (6)
  - Agitation [None]
  - Confusional state [None]
  - Tardive dyskinesia [None]
  - Screaming [None]
  - Tongue biting [None]
  - Acute kidney injury [None]

NARRATIVE: CASE EVENT DATE: 20231129
